FAERS Safety Report 22291832 (Version 2)
Quarter: 2024Q2

REPORT INFORMATION
  Report Type: Spontaneous
  Country: GB (occurrence: GB)
  Receive Date: 20230507
  Receipt Date: 20240507
  Transmission Date: 20240716
  Serious: Yes (Hospitalization)
  Sender: FDA-Public Use
  Company Number: GB-BIOGEN-2022BI01174014

PATIENT
  Age: 61 Year
  Sex: Male

DRUGS (1)
  1. TECFIDERA [Suspect]
     Active Substance: DIMETHYL FUMARATE
     Indication: Multiple sclerosis
     Dosage: MAINTENANCE DOSE
     Route: 050

REACTIONS (6)
  - Lower limb fracture [Unknown]
  - Product storage error [Unknown]
  - Pruritus [Unknown]
  - Feeling hot [Unknown]
  - Hot flush [Unknown]
  - Erythema [Unknown]

NARRATIVE: CASE EVENT DATE: 20230101
